FAERS Safety Report 4496880-4 (Version None)
Quarter: 2004Q4

REPORT INFORMATION
  Report Type: 
  Country: None (occurrence: None)
  Receive Date: 20040928
  Receipt Date: 20040726
  Transmission Date: 20050328
  Serious: No
  Sender: FDA-Public Use
  Company Number: 04P-163-0268051-00

PATIENT
  Age: 55 Year
  Sex: Female
  Weight: 62.5964 kg

DRUGS (8)
  1. HUMIRA [Suspect]
     Indication: RHEUMATOID ARTHRITIS
     Dosage: 40 MG, 1 IN 2 WK, SUBCUTANEOUS
     Route: 058
     Dates: start: 20040401
  2. METHOTREXATE SOIDUM [Concomitant]
  3. CELECOXIB [Concomitant]
  4. PREDNISONE [Concomitant]
  5. DARVOCET [Concomitant]
  6. MULTI-VITAMINS [Concomitant]
  7. FISH OIL [Concomitant]
  8. FOLIC ACID [Concomitant]

REACTIONS (1)
  - NASAL SINUS DRAINAGE [None]
